FAERS Safety Report 23201711 (Version 1)
Quarter: 2023Q4

REPORT INFORMATION
  Report Type: Spontaneous
  Country: US (occurrence: None)
  Receive Date: 20231118
  Receipt Date: 20231118
  Transmission Date: 20240110
  Serious: Yes (Other)
  Sender: FDA-Public Use
  Company Number: None

PATIENT
  Age: 39 Year
  Sex: Female
  Weight: 71.1 kg

DRUGS (5)
  1. PAIN RELIEVING LIDOCAINE PATCH [Suspect]
     Active Substance: LIDOCAINE
     Indication: Back pain
     Dosage: OTHER QUANTITY : 1 PATCH(ES);?FREQUENCY : DAILY;?
     Route: 062
     Dates: start: 20231113, end: 20231115
  2. PAIN RELIEVING LIDOCAINE PATCH [Suspect]
     Active Substance: LIDOCAINE
     Indication: Musculoskeletal chest pain
  3. VYVANSE [Concomitant]
     Active Substance: LISDEXAMFETAMINE DIMESYLATE
  4. OTEZLA [Concomitant]
     Active Substance: APREMILAST
  5. PROPRANOLOL HYDROCHLORIDE [Concomitant]
     Active Substance: PROPRANOLOL HYDROCHLORIDE

REACTIONS (5)
  - Application site irritation [None]
  - Application site erythema [None]
  - Application site warmth [None]
  - Application site pain [None]
  - Application site abscess [None]

NARRATIVE: CASE EVENT DATE: 20231115
